FAERS Safety Report 5558813-9 (Version None)
Quarter: 2007Q4

REPORT INFORMATION
  Report Type: 
  Country: None (occurrence: None)
  Receive Date: 20071214
  Receipt Date: 20071207
  Transmission Date: 20080405
  Serious: Yes (Other)
  Sender: FDA-Public Use
  Company Number: BE-PFIZER INC-2007103643

PATIENT
  Age: 66 Year
  Sex: Female
  Weight: 66 kg

DRUGS (2)
  1. GENOTONORM [Suspect]
     Indication: HYPOPITUITARISM
     Dosage: DAILY DOSE:.4MG-FREQ:DAILY
     Route: 058
  2. CABERGOLINE [Concomitant]
     Route: 048
     Dates: start: 20020903

REACTIONS (1)
  - BREAST CANCER [None]
